FAERS Safety Report 23133519 (Version 1)
Quarter: 2023Q4

REPORT INFORMATION
  Report Type: Spontaneous
  Country: US (occurrence: US)
  Receive Date: 20231101
  Receipt Date: 20231101
  Transmission Date: 20240110
  Serious: Yes (Other)
  Sender: FDA-Public Use
  Company Number: US-BAYER-2023A154861

PATIENT
  Age: 71 Year
  Sex: Female

DRUGS (4)
  1. ASPIRIN [Suspect]
     Active Substance: ASPIRIN
     Indication: Cardiac failure
  2. WARFARIN [Suspect]
     Active Substance: WARFARIN
  3. CLOPIDOGREL [Concomitant]
     Active Substance: CLOPIDOGREL BISULFATE
     Indication: Peripheral arterial occlusive disease
  4. IBUPROFEN [Concomitant]
     Active Substance: IBUPROFEN
     Indication: Pain
     Dosage: 1200 MG, QD

REACTIONS (4)
  - Gastrointestinal haemorrhage [None]
  - Melaena [None]
  - Haemoglobin decreased [None]
  - Contraindicated product administered [None]
